FAERS Safety Report 8307788-8 (Version None)
Quarter: 2012Q2

REPORT INFORMATION
  Report Type: 
  Country: None (occurrence: None)
  Receive Date: 20120424
  Receipt Date: 20120417
  Transmission Date: 20120825
  Serious: Yes (Life-Threatening, Hospitalization, Other)
  Sender: FDA-Public Use
  Company Number: FR-PFIZER INC-A02200902386

PATIENT
  Age: 52 Year
  Sex: Female
  Weight: 42 kg

DRUGS (20)
  1. FLUOROURACIL [Suspect]
     Dosage: 4025 MG, UNK
     Route: 042
     Dates: start: 20090610
  2. FLUOROURACIL [Suspect]
     Dosage: 3975 MG, UNK
     Route: 042
     Dates: start: 20090701
  3. LEVOLEUCOVORIN CALCIUM [Suspect]
     Dosage: 280 MG, EVERY 2 WEEKS
     Route: 042
     Dates: start: 20090715, end: 20090715
  4. FLUOROURACIL [Suspect]
     Dosage: UNK
     Route: 042
     Dates: start: 20090525
  5. IRINOTECAN HCL [Suspect]
     Dosage: 260 MG, UNK
     Route: 042
     Dates: start: 20090525
  6. LEVOLEUCOVORIN CALCIUM [Suspect]
     Indication: COLORECTAL CANCER METASTATIC
     Dosage: 230 MG, UNK
     Route: 042
     Dates: start: 20090408
  7. IRINOTECAN HCL [Suspect]
     Dosage: 260 MG, UNK
     Route: 042
     Dates: start: 20090610
  8. IRINOTECAN HCL [Suspect]
     Dosage: 260 MG, UNK
     Route: 042
     Dates: start: 20090701
  9. FLUOROURACIL [Suspect]
     Indication: COLORECTAL CANCER METASTATIC
     Dosage: 3260 MG, UNK
     Route: 042
     Dates: start: 20090408
  10. LEVOLEUCOVORIN CALCIUM [Suspect]
     Dosage: 290 MG, UNK
     Route: 042
     Dates: start: 20090610
  11. AVASTIN [Suspect]
     Dosage: 220 MG, UNK
     Route: 042
     Dates: start: 20090715, end: 20090715
  12. FLUOROURACIL [Suspect]
     Dosage: 4000 MG, EVERY 2 WEEKS
     Route: 042
     Dates: start: 20090715, end: 20090715
  13. IRINOTECAN HCL [Suspect]
     Indication: COLORECTAL CANCER METASTATIC
     Dosage: 210 MG, UNK
     Route: 042
     Dates: start: 20090408
  14. LEVOLEUCOVORIN CALCIUM [Suspect]
     Dosage: UNK
     Route: 042
     Dates: start: 20090525
  15. AVASTIN [Suspect]
     Dosage: 220 MG, UNK
     Route: 042
     Dates: start: 20090701
  16. FRAXODI [Suspect]
     Indication: PELVIC VENOUS THROMBOSIS
  17. IRINOTECAN HCL [Suspect]
     Dosage: 260 MG, EVERY 2 WEEKS
     Route: 042
     Dates: start: 20090715, end: 20090715
  18. AVASTIN [Suspect]
     Indication: COLORECTAL CANCER METASTATIC
     Dosage: 225 MG, EVERY 2 WEEKS
     Route: 042
     Dates: start: 20090610
  19. FRAXODI [Suspect]
     Indication: HEPATIC VEIN THROMBOSIS
     Dosage: 0.6 ML, DAILY
     Route: 058
     Dates: start: 20090619, end: 20090801
  20. LEVOLEUCOVORIN CALCIUM [Suspect]
     Dosage: 280 MG, UNK
     Route: 042
     Dates: start: 20090701

REACTIONS (7)
  - ABDOMINAL PAIN [None]
  - HAEMATEMESIS [None]
  - PYREXIA [None]
  - DUODENAL ULCER HAEMORRHAGE [None]
  - ANAEMIA [None]
  - CANDIDIASIS [None]
  - LOCALISED INTRAABDOMINAL FLUID COLLECTION [None]
